APPROVED DRUG PRODUCT: LITHIUM CARBONATE
Active Ingredient: LITHIUM CARBONATE
Strength: 600MG
Dosage Form/Route: CAPSULE;ORAL
Application: A090702 | Product #003 | TE Code: AB
Applicant: HETERO LABS LTD UNIT III
Approved: Sep 25, 2009 | RLD: No | RS: No | Type: RX